FAERS Safety Report 19586707 (Version 5)
Quarter: 2021Q3

REPORT INFORMATION
  Report Type: Report from Study
  Country: CN (occurrence: CN)
  Receive Date: 20210721
  Receipt Date: 20210913
  Transmission Date: 20211014
  Serious: Yes (Death, Hospitalization)
  Sender: FDA-Public Use
  Company Number: CN-KARYOPHARM-2021KPT000929

PATIENT
  Age: 50 Year
  Sex: Male

DRUGS (14)
  1. CARBOPLATIN. [Suspect]
     Active Substance: CARBOPLATIN
     Dosage: 547 MG, SINGLE
     Route: 042
     Dates: start: 20210508, end: 20210508
  2. SELINEXOR [Suspect]
     Active Substance: SELINEXOR
     Dosage: 40 MG EVERY 3 WEEKS ON D1 AND D8
     Route: 048
     Dates: start: 20210619, end: 20210625
  3. CARBOPLATIN. [Suspect]
     Active Substance: CARBOPLATIN
     Indication: ANGIOCENTRIC LYMPHOMA
     Dosage: 444 MG, SINGLE
     Route: 042
     Dates: start: 20210414, end: 20210414
  4. IFOSFAMIDE. [Suspect]
     Active Substance: IFOSFAMIDE
     Dosage: 2 G, SINGLE
     Route: 042
     Dates: start: 20210529, end: 20210531
  5. ETOPOSIDE. [Suspect]
     Active Substance: ETOPOSIDE
     Dosage: 119 MG, SINGLE
     Route: 042
     Dates: start: 20210507, end: 20210509
  6. ETOPOSIDE. [Suspect]
     Active Substance: ETOPOSIDE
     Dosage: 120 MG, SINGLE
     Route: 042
     Dates: start: 20210619, end: 20210621
  7. IFOSFAMIDE. [Suspect]
     Active Substance: IFOSFAMIDE
     Dosage: 1.98 G, SINGLE
     Route: 042
     Dates: start: 20210507, end: 20210509
  8. ETOPOSIDE. [Suspect]
     Active Substance: ETOPOSIDE
     Indication: ANGIOCENTRIC LYMPHOMA
     Dosage: 119 MG, SINGLE
     Route: 042
     Dates: start: 20210413, end: 20210415
  9. IFOSFAMIDE. [Suspect]
     Active Substance: IFOSFAMIDE
     Indication: ANGIOCENTRIC LYMPHOMA
     Dosage: 1.98 G, SINGLE
     Route: 042
     Dates: start: 20210413, end: 20210415
  10. ETOPOSIDE. [Suspect]
     Active Substance: ETOPOSIDE
     Dosage: 120 MG, SINGLE
     Route: 042
     Dates: start: 20210529, end: 20210531
  11. SELINEXOR [Suspect]
     Active Substance: SELINEXOR
     Indication: ANGIOCENTRIC LYMPHOMA
     Dosage: 60 MG EVERY 3 WEEKS ON D1 AND D8
     Route: 048
     Dates: start: 20210413, end: 20210604
  12. IFOSFAMIDE. [Suspect]
     Active Substance: IFOSFAMIDE
     Dosage: 2 G, SINGLE
     Route: 042
     Dates: start: 20210619, end: 20210621
  13. CARBOPLATIN. [Suspect]
     Active Substance: CARBOPLATIN
     Dosage: 500 MG, SINGLE
     Route: 042
     Dates: start: 20210530, end: 20210530
  14. CARBOPLATIN. [Suspect]
     Active Substance: CARBOPLATIN
     Dosage: 400 MG, SINGLE
     Route: 042
     Dates: start: 20210620, end: 20210620

REACTIONS (3)
  - Cardiac failure acute [Fatal]
  - Pneumonia [Fatal]
  - Anaemia [Recovered/Resolved]

NARRATIVE: CASE EVENT DATE: 202107
